FAERS Safety Report 6627088-1 (Version None)
Quarter: 2010Q1

REPORT INFORMATION
  Report Type: 
  Country: None (occurrence: None)
  Receive Date: 20100311
  Receipt Date: 20090803
  Transmission Date: 20100710
  Serious: No
  Sender: FDA-Public Use
  Company Number: A0800313A

PATIENT
  Age: 35 Year
  Sex: Female

DRUGS (1)
  1. NICOTINE POLACRILEX [Suspect]
     Dates: start: 20090801, end: 20090802

REACTIONS (3)
  - CHEST DISCOMFORT [None]
  - PHARYNGEAL OEDEMA [None]
  - THROAT TIGHTNESS [None]
